FAERS Safety Report 18422824 (Version 2)
Quarter: 2020Q4

REPORT INFORMATION
  Report Type: Spontaneous
  Country: US (occurrence: US)
  Receive Date: 20201023
  Receipt Date: 20201120
  Transmission Date: 20210114
  Serious: Yes (Hospitalization, Other)
  Sender: FDA-Public Use
  Company Number: US-BRISTOL-MYERS SQUIBB COMPANY-BMS-2020-086363

PATIENT
  Age: 50 Year
  Sex: Female
  Weight: 85.27 kg

DRUGS (1)
  1. ORENCIA [Suspect]
     Active Substance: ABATACEPT
     Indication: RHEUMATOID ARTHRITIS
     Dosage: UNK, QWK
     Route: 058

REACTIONS (6)
  - Seroma [Unknown]
  - Neoplasm [Unknown]
  - Infected neoplasm [Unknown]
  - Device malfunction [Unknown]
  - Arthropathy [Unknown]
  - Weight increased [Unknown]

NARRATIVE: CASE EVENT DATE: 2019
